FAERS Safety Report 24072078 (Version 2)
Quarter: 2024Q3

REPORT INFORMATION
  Report Type: Spontaneous
  Country: GB (occurrence: GB)
  Receive Date: 20240710
  Receipt Date: 20240827
  Transmission Date: 20241016
  Serious: Yes (Hospitalization, Other)
  Sender: AUROBINDO
  Company Number: GB-AUROBINDO-AUR-APL-2024-033086

PATIENT
  Age: 70 Year
  Sex: Female

DRUGS (5)
  1. ISOSORBIDE MONONITRATE [Suspect]
     Active Substance: ISOSORBIDE MONONITRATE
     Indication: Prinzmetal angina
     Dosage: 40 MILLIGRAM, ONCE A DAY
     Route: 065
  2. ISOSORBIDE MONONITRATE [Suspect]
     Active Substance: ISOSORBIDE MONONITRATE
     Dosage: 40 MILLIGRAM, TWO TIMES A DAY
     Route: 065
  3. DILTIAZEM [Suspect]
     Active Substance: DILTIAZEM
     Indication: Prinzmetal angina
     Dosage: 60 MILLIGRAM, TWO TIMES A DAY
     Route: 065
  4. DILTIAZEM [Suspect]
     Active Substance: DILTIAZEM
     Dosage: 120 MILLIGRAM, TWO TIMES A DAY
     Route: 065
  5. ISOSORBIDE MONONITRATE [Suspect]
     Active Substance: ISOSORBIDE MONONITRATE
     Indication: Product used for unknown indication
     Dosage: 20 MILLIGRAM, TWO TIMES A DAY (EVENING DOSE TAKEN BEFORE BEDTIME)
     Route: 065

REACTIONS (4)
  - Myocardial infarction [Recovered/Resolved]
  - Tachyphylaxis [Recovered/Resolved]
  - Acute coronary syndrome [Recovered/Resolved]
  - Chest pain [Recovered/Resolved]
